FAERS Safety Report 7823884-3 (Version None)
Quarter: 2011Q4

REPORT INFORMATION
  Report Type: 
  Country: None (occurrence: None)
  Receive Date: 20111014
  Receipt Date: 20111003
  Transmission Date: 20120403
  Serious: Yes (Life-Threatening, Hospitalization, Other)
  Sender: FDA-Public Use
  Company Number: 2011P1009223

PATIENT
  Age: 43 Year
  Sex: Male

DRUGS (4)
  1. ALBENDAZOLE (NO PREF. NAME) [Suspect]
     Indication: FILARIASIS LYMPHATIC
     Dosage: 1 TABLET; X1; PO
     Route: 048
     Dates: start: 20110819, end: 20110819
  2. ALBENDAZOLE (NO PREF. NAME) [Suspect]
     Indication: ONCHOCERCIASIS
     Dosage: 1 TABLET; X1; PO
     Route: 048
     Dates: start: 20110819, end: 20110819
  3. IVERMECTIN (NO PREF. NAME) [Suspect]
     Indication: ONCHOCERCIASIS
     Dosage: 4 TABLETS; X1; PO
     Route: 048
     Dates: start: 20110819, end: 20110819
  4. IVERMECTIN (NO PREF. NAME) [Suspect]
     Indication: FILARIASIS LYMPHATIC
     Dosage: 4 TABLETS; X1; PO
     Route: 048
     Dates: start: 20110819, end: 20110819

REACTIONS (12)
  - SOMNOLENCE [None]
  - HICCUPS [None]
  - PYREXIA [None]
  - ENCEPHALOPATHY [None]
  - ALCOHOL POISONING [None]
  - ASTHENIA [None]
  - DIARRHOEA [None]
  - URINARY INCONTINENCE [None]
  - ABNORMAL BEHAVIOUR [None]
  - VERTIGO [None]
  - CONJUNCTIVAL HAEMORRHAGE [None]
  - FILARIASIS [None]
